FAERS Safety Report 5158274-8 (Version None)
Quarter: 2006Q4

REPORT INFORMATION
  Report Type: 
  Country: None (occurrence: None)
  Receive Date: 20061117
  Receipt Date: 20061103
  Transmission Date: 20070319
  Serious: Yes (Other)
  Sender: FDA-Public Use
  Company Number: HQWYE112321DEC05

PATIENT
  Age: 39 Year
  Sex: Male

DRUGS (16)
  1. RAPAMUNE [Suspect]
     Indication: PROPHYLAXIS AGAINST TRANSPLANT REJECTION
     Dosage: 6 MG 1X PER 1 DAY ORAL
     Route: 048
     Dates: start: 20050605, end: 20051116
  2. BACTRIM [Concomitant]
  3. AMLODIPINE BESYLATE [Concomitant]
  4. SECTRAL [Concomitant]
  5. UN-ALFA (ALFACALCIDOL) [Concomitant]
  6. OMEPRAZOLE [Concomitant]
  7. PRAVASTATIN [Concomitant]
  8. SODIUM BICARBONATE IN PLASTIC CONTAINER [Concomitant]
  9. ACEBUTOLOL [Concomitant]
  10. SENSIPAR (CINACALCET HYDROCHLORIDE) [Concomitant]
  11. IRON (IRON) [Concomitant]
  12. MYCOPHENOLATE MOFETIL [Concomitant]
  13. ZENAPAX [Concomitant]
  14. ZENAPAX [Concomitant]
  15. CYCLOSPORINE [Concomitant]
  16. PREDNISONE [Concomitant]

REACTIONS (6)
  - ANAEMIA [None]
  - ASTHENIA [None]
  - COUGH [None]
  - DRUG INTOLERANCE [None]
  - STOMATITIS [None]
  - WEIGHT DECREASED [None]
